FAERS Safety Report 8423344-5 (Version None)
Quarter: 2012Q2

REPORT INFORMATION
  Report Type: 
  Country: None (occurrence: None)
  Receive Date: 20120608
  Receipt Date: 20120606
  Transmission Date: 20120825
  Serious: Yes (Hospitalization, Other)
  Sender: FDA-Public Use
  Company Number: DE-AMGEN-DEUCT2011051863

PATIENT
  Sex: Female

DRUGS (6)
  1. CISPLATIN [Concomitant]
     Indication: OESOPHAGEAL ADENOCARCINOMA
     Dosage: 60 MG/M2, UNK
     Dates: start: 20110603
  2. EPIRUBICIN [Concomitant]
     Indication: OESOPHAGEAL ADENOCARCINOMA
     Dosage: 50 MG/M2, UNK
     Dates: start: 20110603
  3. XELODA [Concomitant]
     Indication: OESOPHAGEAL ADENOCARCINOMA
     Dosage: 1000 MG, TID
     Route: 048
     Dates: start: 20110603, end: 20110616
  4. ENOXAPARIN SODIUM [Concomitant]
     Dosage: 0.4 ML, BID
     Route: 058
     Dates: start: 20110523
  5. PANITUMUMAB [Suspect]
     Indication: OESOPHAGEAL ADENOCARCINOMA
     Dosage: UNK
     Dates: start: 20110603
  6. PANTOPRAZOLE [Concomitant]
     Dosage: 40 MG, QD
     Route: 048
     Dates: start: 20110603, end: 20110624

REACTIONS (1)
  - THROMBOSIS [None]
